FAERS Safety Report 9540669 (Version 3)
Quarter: 2013Q4

REPORT INFORMATION
  Report Type: Spontaneous
  Country: JP (occurrence: JP)
  Receive Date: 20130920
  Receipt Date: 20131108
  Transmission Date: 20140711
  Serious: Yes (Death, Hospitalization)
  Sender: FDA-Public Use
  Company Number: JP-B.I. PHARMACEUTICALS,INC./RIDGEFIELD-2013-BI-29552NB

PATIENT
  Age: 79 Year
  Sex: Female

DRUGS (10)
  1. PRAZAXA [Suspect]
     Indication: ATRIAL FIBRILLATION
     Dosage: 220 MG
     Route: 048
     Dates: start: 20130131
  2. WYPAX / LORAZEPAM [Concomitant]
     Indication: ANXIETY
     Dosage: 1 MG
     Route: 048
  3. ATELEC / CILNIDIPINE [Concomitant]
     Indication: HYPERTENSION
     Dosage: 5 NR
     Route: 048
  4. MAINTATE / BISOPROLOL FUMARATE [Concomitant]
     Indication: ATRIAL FIBRILLATION
     Dosage: 5 NR
     Route: 048
  5. NU-LOTAN / LOSARTAN POTASSIUM [Concomitant]
     Indication: HYPERTENSION
     Dosage: 25 MG
     Route: 048
  6. LASIX / FUROSEMIDE [Concomitant]
     Indication: HYPERTENSION
     Dosage: 20 MG
     Route: 048
  7. LIPITOR / ATORVASTATIN CALCIUM HYDRATE [Concomitant]
     Indication: HYPERCHOLESTEROLAEMIA
     Dosage: 10 MG
     Route: 065
  8. TAKEPRON / LANSOPRAZOLE [Concomitant]
     Indication: GASTROOESOPHAGEAL REFLUX DISEASE
     Dosage: 15 MG
     Route: 065
  9. VESICARE OD / SOLIFENACIN SUCCINATE [Concomitant]
     Indication: HYPERTONIC BLADDER
     Dosage: 5 MG
     Route: 065
  10. EQUA / VILDAGLIPTIN [Concomitant]
     Indication: TYPE 2 DIABETES MELLITUS
     Dosage: 100 MG
     Route: 065

REACTIONS (3)
  - Arterial occlusive disease [Fatal]
  - Embolic stroke [Fatal]
  - Drug effect incomplete [Unknown]
